FAERS Safety Report 8478709-2 (Version None)
Quarter: 2012Q2

REPORT INFORMATION
  Report Type: 
  Country: None (occurrence: None)
  Receive Date: 20120620
  Receipt Date: 20120611
  Transmission Date: 20120825
  Serious: Yes (Hospitalization)
  Sender: FDA-Public Use
  Company Number: 2012SP030006

PATIENT
  Age: 57 Year
  Sex: Female
  Weight: 82 kg

DRUGS (7)
  1. SYCREST (ASENAPINE) [Suspect]
     Indication: MANIA
     Dosage: 200MG;QD;PO, 20 MG;QD;PO, PO
     Route: 048
     Dates: end: 20120401
  2. SYCREST (ASENAPINE) [Suspect]
     Indication: BIPOLAR I DISORDER
     Dosage: 200MG;QD;PO, 20 MG;QD;PO, PO
     Route: 048
     Dates: end: 20120401
  3. SYCREST (ASENAPINE) [Suspect]
     Indication: MANIA
     Dosage: 200MG;QD;PO, 20 MG;QD;PO, PO
     Route: 048
     Dates: start: 20110908, end: 20111109
  4. SYCREST (ASENAPINE) [Suspect]
     Indication: BIPOLAR I DISORDER
     Dosage: 200MG;QD;PO, 20 MG;QD;PO, PO
     Route: 048
     Dates: start: 20110908, end: 20111109
  5. SYCREST (ASENAPINE) [Suspect]
     Indication: MANIA
     Dosage: 200MG;QD;PO, 20 MG;QD;PO, PO
     Route: 048
     Dates: start: 20111110
  6. SYCREST (ASENAPINE) [Suspect]
     Indication: BIPOLAR I DISORDER
     Dosage: 200MG;QD;PO, 20 MG;QD;PO, PO
     Route: 048
     Dates: start: 20111110
  7. LAMOTRIGINE [Concomitant]

REACTIONS (10)
  - ASTHENIA [None]
  - FEELING OF DESPAIR [None]
  - SUICIDAL IDEATION [None]
  - THYROID NEOPLASM [None]
  - DEPRESSION [None]
  - SOCIAL AVOIDANT BEHAVIOUR [None]
  - SLEEP DISORDER [None]
  - INCREASED APPETITE [None]
  - BLOOD PRESSURE INCREASED [None]
  - TOXICITY TO VARIOUS AGENTS [None]
